FAERS Safety Report 5985924-6 (Version None)
Quarter: 2008Q4

REPORT INFORMATION
  Report Type: 
  Country: None (occurrence: None)
  Receive Date: 20081205
  Receipt Date: 20081205
  Transmission Date: 20090506
  Serious: Yes (Death)
  Sender: FDA-Public Use
  Company Number: None

PATIENT
  Age: 73 Year
  Sex: Male
  Weight: 72.4 kg

DRUGS (19)
  1. GEMCITABINE HCL [Suspect]
     Indication: NON-SMALL CELL LUNG CANCER STAGE IV
     Dosage: 400 MG/M2 Q2 WEEKS IV
     Route: 042
     Dates: start: 20081008, end: 20081112
  2. PEMETREXED [Suspect]
     Indication: NON-SMALL CELL LUNG CANCER STAGE IV
     Dosage: 1200 MG/M2 Q2 WEEKS IV
     Route: 042
     Dates: start: 20081008, end: 20081112
  3. BEVACIZUMAB [Suspect]
     Indication: NON-SMALL CELL LUNG CANCER STAGE IV
     Dosage: 10 MG/KG
     Dates: start: 20081008, end: 20081112
  4. ASPIRIN [Concomitant]
  5. SELENIUM [Concomitant]
  6. LYCOPENE [Concomitant]
  7. VITAMIN B COMPLEX CAP [Concomitant]
  8. GLUCOSAMINE [Concomitant]
  9. CALCIUM CITRATE [Concomitant]
  10. FOSAMAX [Concomitant]
  11. OMEPRAZOLE [Concomitant]
  12. LISINOPRIL [Concomitant]
  13. CATAFLAM [Concomitant]
  14. TYLENOL W/ CODEINE NO. 3 [Concomitant]
  15. CIALIS [Concomitant]
  16. ASCORBIC ACID [Concomitant]
  17. FISH OIL SUPPLEMENTS [Concomitant]
  18. XOPENEX [Concomitant]
  19. ALBUTEROL [Concomitant]

REACTIONS (2)
  - DISEASE PROGRESSION [None]
  - NON-SMALL CELL LUNG CANCER [None]
